FAERS Safety Report 16437926 (Version 1)
Quarter: 2019Q2

REPORT INFORMATION
  Report Type: Spontaneous
  Country: US (occurrence: US)
  Receive Date: 20190617
  Receipt Date: 20190617
  Transmission Date: 20190711
  Serious: No
  Sender: FDA-Public Use
  Company Number: US-AMGEN-USASP2019094125

PATIENT
  Age: 68 Year
  Sex: Female

DRUGS (4)
  1. ENBREL [Suspect]
     Active Substance: ETANERCEPT
     Indication: PSORIATIC ARTHROPATHY
     Dosage: UNK
     Route: 065
  2. CYMBALTA [Suspect]
     Active Substance: DULOXETINE HYDROCHLORIDE
     Indication: PRODUCT USED FOR UNKNOWN INDICATION
     Dosage: UNK
     Route: 065
     Dates: start: 2016
  3. LYRICA [Suspect]
     Active Substance: PREGABALIN
     Indication: PSORIATIC ARTHROPATHY
     Dosage: 100 MILLIGRAM, TID
     Route: 065
     Dates: start: 2018, end: 2018
  4. LYRICA [Suspect]
     Active Substance: PREGABALIN
     Dosage: 100 MILLIGRAM, TID
     Route: 065
     Dates: start: 20190605

REACTIONS (9)
  - Dysphagia [Unknown]
  - Blister [Not Recovered/Not Resolved]
  - Abdominal pain upper [Unknown]
  - Dysphonia [Unknown]
  - Gastric disorder [Unknown]
  - Skin irritation [Not Recovered/Not Resolved]
  - Throat tightness [Unknown]
  - Skin discolouration [Unknown]
  - Skin reaction [Not Recovered/Not Resolved]

NARRATIVE: CASE EVENT DATE: 2018
